FAERS Safety Report 10031949 (Version 2)
Quarter: 2014Q2

REPORT INFORMATION
  Report Type: Spontaneous
  Country: BR (occurrence: BR)
  Receive Date: 20140324
  Receipt Date: 20140402
  Transmission Date: 20141212
  Serious: Yes (Other)
  Sender: FDA-Public Use
  Company Number: BR-SA-2014SA031897

PATIENT
  Age: 26 Year
  Sex: Female
  Weight: 62 kg

DRUGS (10)
  1. LANTUS [Suspect]
     Indication: TYPE 2 DIABETES MELLITUS
     Route: 058
     Dates: start: 2007
  2. HUMALOG [Suspect]
     Indication: TYPE 2 DIABETES MELLITUS
     Route: 065
     Dates: start: 2011
  3. CLIKSTAR [Concomitant]
     Indication: DEVICE THERAPY
  4. ETHINYLESTRADIOL [Concomitant]
     Indication: CONTRACEPTION
     Route: 048
     Dates: start: 201312
  5. BACTRIM [Concomitant]
     Indication: TRANSPLANT REJECTION
     Route: 048
     Dates: start: 201312
  6. PREDNISONE [Concomitant]
     Indication: TRANSPLANT REJECTION
     Route: 048
     Dates: start: 201312
  7. AAS [Concomitant]
     Indication: THROMBOSIS PROPHYLAXIS
     Route: 048
     Dates: start: 2010
  8. OMEPRAZOLE [Concomitant]
     Indication: PROPHYLAXIS
     Route: 048
     Dates: start: 2010
  9. MYFORTIC [Concomitant]
     Indication: TRANSPLANT REJECTION
     Route: 048
     Dates: start: 201312
  10. TACROLIMUS [Concomitant]
     Indication: TRANSPLANT REJECTION
     Route: 048
     Dates: start: 201312

REACTIONS (4)
  - Renal failure [Recovered/Resolved]
  - Nausea [Recovered/Resolved]
  - Peripheral swelling [Recovered/Resolved]
  - Fluid retention [Recovered/Resolved]
